FAERS Safety Report 13367800 (Version 1)
Quarter: 2017Q1

REPORT INFORMATION
  Report Type: Spontaneous
  Country: US (occurrence: US)
  Receive Date: 20170323
  Receipt Date: 20170323
  Transmission Date: 20170429
  Serious: Yes (Disabling)
  Sender: FDA-Public Use
  Company Number: None

PATIENT
  Age: 39 Year
  Sex: Female
  Weight: 57.15 kg

DRUGS (3)
  1. WELLBUTRIN [Concomitant]
     Active Substance: BUPROPION HYDROCHLORIDE
  2. PROBIOTICS [Concomitant]
     Active Substance: PROBIOTICS NOS
  3. LEVOFLOXIN [Suspect]
     Active Substance: LEVOFLOXACIN
     Indication: UPPER RESPIRATORY TRACT INFECTION
     Dosage: ?          QUANTITY:10 TABLET(S);?
     Route: 048
     Dates: start: 20161222, end: 20170101

REACTIONS (17)
  - Myalgia [None]
  - Dehydration [None]
  - Eye pain [None]
  - Musculoskeletal pain [None]
  - Arthralgia [None]
  - Dyspepsia [None]
  - Headache [None]
  - Drug ineffective [None]
  - Bone pain [None]
  - Hypoaesthesia [None]
  - Pelvic pain [None]
  - Weight decreased [None]
  - Back pain [None]
  - Pain [None]
  - Paraesthesia [None]
  - Depressed level of consciousness [None]
  - Pain in extremity [None]

NARRATIVE: CASE EVENT DATE: 20161223
